FAERS Safety Report 9652877 (Version 1)
Quarter: 2013Q4

REPORT INFORMATION
  Report Type: Spontaneous
  Country: FR (occurrence: FR)
  Receive Date: 20131029
  Receipt Date: 20131029
  Transmission Date: 20140711
  Serious: Yes (Other)
  Sender: FDA-Public Use
  Company Number: FR-ASTRAZENECA-2013SE78851

PATIENT
  Age: 64 Year
  Sex: Female

DRUGS (7)
  1. ARIMIDEX [Suspect]
     Indication: BREAST CANCER RECURRENT
     Route: 048
     Dates: start: 201303
  2. TEMESTA [Concomitant]
     Indication: SLEEP DISORDER
  3. LYRICA [Concomitant]
  4. SANMIGRAN [Concomitant]
     Indication: MIGRAINE
     Dosage: ONE DF IN THE MORNING AND ONE DF IN THE EVENING
  5. RYTHMODAN [Concomitant]
     Indication: TACHYCARDIA
  6. ALPRAZOLAM [Concomitant]
     Dosage: HALF DF IN THE MORNING AND HALF DF IN THE EVENING
  7. TAMOXIFEN [Concomitant]
     Indication: BREAST CANCER
     Dosage: FOR 6 YEARS

REACTIONS (4)
  - Vaginal polyp [Not Recovered/Not Resolved]
  - Vulvovaginal burning sensation [Not Recovered/Not Resolved]
  - Urinary tract infection [Unknown]
  - Vulvovaginal dryness [Not Recovered/Not Resolved]
